FAERS Safety Report 9029895 (Version 1)
Quarter: 2013Q1

REPORT INFORMATION
  Report Type: Spontaneous
  Country: ES (occurrence: ES)
  Receive Date: 20130124
  Receipt Date: 20130124
  Transmission Date: 20140127
  Serious: Yes (Hospitalization)
  Sender: FDA-Public Use
  Company Number: ES-ELI_LILLY_AND_COMPANY-ES201301003916

PATIENT
  Age: 63 Year
  Sex: Female

DRUGS (2)
  1. HUMALOG 25% LISPRO, 75% NPL [Suspect]
     Dosage: UNK
  2. METFORMIN [Concomitant]
     Dosage: 850 MG, QD

REACTIONS (2)
  - Urticaria [Unknown]
  - Hypersensitivity [Unknown]
